FAERS Safety Report 9109744 (Version 1)
Quarter: 2013Q1

REPORT INFORMATION
  Report Type: Spontaneous
  Country: CH (occurrence: CH)
  Receive Date: 20130222
  Receipt Date: 20130222
  Transmission Date: 20140127
  Serious: Yes (Other)
  Sender: FDA-Public Use
  Company Number: CH-MPIJNJ-2013-01277

PATIENT
  Sex: 0

DRUGS (3)
  1. VELCADE [Suspect]
     Indication: PLASMA CELL MYELOMA
     Dosage: 1.3 MG/M2, CYCLIC
     Route: 065
     Dates: start: 20120919
  2. DEXAMETHASONE [Concomitant]
     Dosage: 20 MG, CYCLIC
  3. VALTREX [Concomitant]
     Dosage: 500 MG, BID

REACTIONS (4)
  - Pancreatic carcinoma metastatic [Unknown]
  - Myocardial infarction [Unknown]
  - Cerebrovascular accident [Unknown]
  - Metastases to liver [Unknown]
